FAERS Safety Report 23501510 (Version 1)
Quarter: 2024Q1

REPORT INFORMATION
  Report Type: Report from Study
  Country: EG (occurrence: EG)
  Receive Date: 20240208
  Receipt Date: 20240208
  Transmission Date: 20240410
  Serious: Yes (Other)
  Sender: FDA-Public Use
  Company Number: EG-SANDOZ-SDZ2024EG012415

PATIENT
  Age: 8 Year
  Sex: Female
  Weight: 16.5 kg

DRUGS (3)
  1. OMNITROPE [Suspect]
     Active Substance: SOMATROPIN
     Indication: Growth hormone deficiency
     Dosage: 0.7 MG WAS TAKEN DURING FIRST OMNITROPETREATMENT BUT NOW ONLY 0.6 MG IS NEEDEDFOR THE NEW TREATMENT
     Route: 058
     Dates: start: 202308, end: 20231116
  2. SOMATROPIN [Suspect]
     Active Substance: SOMATROPIN
     Indication: Growth hormone deficiency
     Dosage: HALF AMPULE/DAY
     Route: 058
     Dates: start: 20231126
  3. LEVOTHYROXINE [Concomitant]
     Active Substance: LEVOTHYROXINE\LEVOTHYROXINE SODIUM
     Indication: Hypothyroidism
     Dosage: 25 MG, QD
     Route: 048
     Dates: start: 202204

REACTIONS (6)
  - Mental disorder [Not Recovered/Not Resolved]
  - Therapy cessation [Not Recovered/Not Resolved]
  - Product substitution issue [Not Recovered/Not Resolved]
  - Therapeutic response unexpected [Recovered/Resolved]
  - Injection site inflammation [Unknown]
  - Injection site pain [Unknown]

NARRATIVE: CASE EVENT DATE: 20231116
